FAERS Safety Report 20050471 (Version 2)
Quarter: 2022Q1

REPORT INFORMATION
  Report Type: Spontaneous
  Country: US (occurrence: US)
  Receive Date: 20211109
  Receipt Date: 20220112
  Transmission Date: 20220424
  Serious: Yes (Hospitalization, Other)
  Sender: FDA-Public Use
  Company Number: US-Covis Pharma GmbH-2021COV24646

PATIENT
  Age: 0 Day
  Sex: Female
  Weight: 2.044 kg

DRUGS (1)
  1. MAKENA [Suspect]
     Active Substance: HYDROXYPROGESTERONE CAPROATE
     Indication: Foetal exposure during pregnancy
     Route: 064
     Dates: start: 20210618, end: 20211026

REACTIONS (2)
  - Temperature regulation disorder [Unknown]
  - Premature baby [Unknown]

NARRATIVE: CASE EVENT DATE: 20211029
